FAERS Safety Report 10424945 (Version 2)
Quarter: 2014Q4

REPORT INFORMATION
  Report Type: Spontaneous
  Country: US (occurrence: None)
  Receive Date: 20140722
  Receipt Date: 20141121
  Transmission Date: 20150528
  Serious: No
  Sender: FDA-Public Use
  Company Number: 163-10004-14050627

PATIENT
  Age: 64 Year
  Sex: Female
  Weight: 79.09 kg

DRUGS (13)
  1. BENICAR [Concomitant]
     Active Substance: OLMESARTAN MEDOXOMIL
  2. PRESTIQUE (TANDALGESIC) [Concomitant]
  3. SINGULAIR [Concomitant]
     Active Substance: MONTELUKAST SODIUM
  4. SEROQUEL [Concomitant]
     Active Substance: QUETIAPINE FUMARATE
  5. ALBUTEROL (SALBUTAMOL) [Concomitant]
     Active Substance: ALBUTEROL
  6. ZEGERID (OMEPRAZOLE) [Concomitant]
  7. SPIRONOLACTONE. [Concomitant]
     Active Substance: SPIRONOLACTONE
  8. OTEZLA [Suspect]
     Active Substance: APREMILAST
     Indication: PSORIATIC ARTHROPATHY
     Dosage: 04/21/2014- DISCONTINUED
     Route: 048
     Dates: start: 20140421
  9. CELEBREX [Concomitant]
     Active Substance: CELECOXIB
  10. GABAPENTIN. [Concomitant]
     Active Substance: GABAPENTIN
  11. BACLOFEN. [Concomitant]
     Active Substance: BACLOFEN
  12. CEFTIN (CEFUROXIME AXETIL) [Concomitant]
  13. BUDESONIDE. [Concomitant]
     Active Substance: BUDESONIDE

REACTIONS (4)
  - Headache [None]
  - Feeling of body temperature change [None]
  - Diarrhoea [None]
  - Contusion [None]

NARRATIVE: CASE EVENT DATE: 20140428
